FAERS Safety Report 11920447 (Version 4)
Quarter: 2016Q1

REPORT INFORMATION
  Report Type: Spontaneous
  Country: JP (occurrence: JP)
  Receive Date: 20160115
  Receipt Date: 20160226
  Transmission Date: 20160526
  Serious: Yes (Other)
  Sender: FDA-Public Use
  Company Number: JP-ASTRAZENECA-2016SE03365

PATIENT
  Age: 46 Year
  Sex: Male
  Weight: 106 kg

DRUGS (2)
  1. FORXIGA [Suspect]
     Active Substance: DAPAGLIFLOZIN
     Indication: TYPE 2 DIABETES MELLITUS
     Route: 048
     Dates: start: 20150711, end: 20151214
  2. ZOLPIDEM TARTRATE. [Suspect]
     Active Substance: ZOLPIDEM TARTRATE
     Indication: SLEEP DISORDER
     Route: 048
     Dates: start: 20141205

REACTIONS (5)
  - Cholecystitis acute [Recovering/Resolving]
  - Haematocrit increased [Recovered/Resolved]
  - Cerebral infarction [Recovered/Resolved]
  - Pollakiuria [Recovered/Resolved]
  - Basilar artery stenosis [Recovered/Resolved]

NARRATIVE: CASE EVENT DATE: 20150711
